FAERS Safety Report 19227668 (Version 2)
Quarter: 2021Q2

REPORT INFORMATION
  Report Type: Spontaneous
  Country: TR (occurrence: TR)
  Receive Date: 20210507
  Receipt Date: 20210518
  Transmission Date: 20210717
  Serious: Yes (Other)
  Sender: FDA-Public Use
  Company Number: TR-SUN PHARMACEUTICAL INDUSTRIES LTD-2021RR-294912

PATIENT
  Age: 16 Year
  Sex: Male

DRUGS (3)
  1. SELECTRA (SERTRALINE HYDROCHLORIDE) [Suspect]
     Active Substance: SERTRALINE HYDROCHLORIDE
     Indication: DEPRESSION
     Dosage: 50 MILLIGRAM, DAILY
     Route: 065
  2. SELECTRA (SERTRALINE HYDROCHLORIDE) [Suspect]
     Active Substance: SERTRALINE HYDROCHLORIDE
     Dosage: INCREASED TO 100 MILLIGRAM, DAILY
     Route: 065
  3. PROZAC [Suspect]
     Active Substance: FLUOXETINE HYDROCHLORIDE
     Indication: DEPRESSION
     Dosage: 20 MILLIGRAM, DAILY
     Route: 065

REACTIONS (3)
  - Drug intolerance [Unknown]
  - Drug ineffective [Unknown]
  - Condition aggravated [Unknown]
